FAERS Safety Report 13821719 (Version 1)
Quarter: 2017Q3

REPORT INFORMATION
  Report Type: Spontaneous
  Country: US (occurrence: US)
  Receive Date: 20170801
  Receipt Date: 20170801
  Transmission Date: 20171127
  Serious: Yes (Other)
  Sender: FDA-Public Use
  Company Number: US-009507513-1707USA013168

PATIENT
  Age: 8 Year
  Sex: Male

DRUGS (1)
  1. TEMODAR [Suspect]
     Active Substance: TEMOZOLOMIDE
     Indication: ANAPLASTIC OLIGODENDROGLIOMA
     Dosage: 200 MG/M2, CYCLICAL (DAILY FOR 5 DAYS EVERY 28 DAYS FOR 12 CYCLES)
     Route: 048

REACTIONS (2)
  - Thrombocytopenia [Recovered/Resolved]
  - Nausea [Recovered/Resolved]
